FAERS Safety Report 10270813 (Version 2)
Quarter: 2014Q3

REPORT INFORMATION
  Report Type: Spontaneous
  Country: US (occurrence: None)
  Receive Date: 20140626
  Receipt Date: 20140827
  Transmission Date: 20150326
  Serious: Yes (Other)
  Sender: FDA-Public Use
  Company Number: 1713747-2014-99969

PATIENT
  Age: 44 Year
  Sex: Male

DRUGS (16)
  1. CYMBALTA [Concomitant]
     Active Substance: DULOXETINE HYDROCHLORIDE
  2. TRICOR [Concomitant]
     Active Substance: FENOFIBRATE
  3. VITAMIN D3 [Concomitant]
     Active Substance: CHOLECALCIFEROL
  4. ASPIRIN. [Concomitant]
     Active Substance: ASPIRIN
  5. SPIRONOLACTONE. [Concomitant]
     Active Substance: SPIRONOLACTONE
  6. DELFLEX [Suspect]
     Active Substance: CALCIUM CHLORIDE\DEXTROSE MONOHYDRATE\MAGNESIUM CHLORIDE\SODIUM CHLORIDE\SODIUM LACTATE
     Indication: RENAL FAILURE CHRONIC
  7. LIBERTY CYCLER [Concomitant]
     Active Substance: DEVICE
  8. HYDROCODONE [Concomitant]
     Active Substance: HYDROCODONE
  9. PREDNISONE. [Concomitant]
     Active Substance: PREDNISONE
  10. NEURONTIN [Concomitant]
     Active Substance: GABAPENTIN
  11. DELFLEX [Suspect]
     Active Substance: CALCIUM CHLORIDE\DEXTROSE MONOHYDRATE\MAGNESIUM CHLORIDE\SODIUM CHLORIDE\SODIUM LACTATE
  12. LIBERTY CYCLER CASSETTE [Concomitant]
     Active Substance: DEVICE
  13. HUMULIN NOS [Concomitant]
     Active Substance: INSULIN HUMAN
  14. LISINOPRIL. [Concomitant]
     Active Substance: LISINOPRIL
  15. MAGNESIUM OXIDE. [Concomitant]
     Active Substance: MAGNESIUM OXIDE
  16. POTASSIUM CHLORIDE. [Concomitant]
     Active Substance: POTASSIUM CHLORIDE

REACTIONS (4)
  - Peritonitis [None]
  - Peritoneal cloudy effluent [None]
  - Abdominal pain [None]
  - Culture positive [None]

NARRATIVE: CASE EVENT DATE: 20140423
